FAERS Safety Report 5606053-7 (Version None)
Quarter: 2008Q1

REPORT INFORMATION
  Report Type: 
  Country: None (occurrence: None)
  Receive Date: 20080129
  Receipt Date: 20080128
  Transmission Date: 20080703
  Serious: Yes (Hospitalization, Other)
  Sender: FDA-Public Use
  Company Number: PE-BRISTOL-MYERS SQUIBB COMPANY-13849740

PATIENT
  Age: 42 Year
  Sex: Female

DRUGS (5)
  1. CISPLATIN [Suspect]
     Indication: SQUAMOUS CELL CARCINOMA
     Route: 065
     Dates: start: 20070621, end: 20070621
  2. LAPATINIB [Suspect]
     Indication: SQUAMOUS CELL CARCINOMA
     Route: 048
     Dates: start: 20070515, end: 20070530
  3. RADIOTHERAPY [Concomitant]
  4. OMEPRAZOLE [Concomitant]
     Dates: start: 20070711, end: 20070713
  5. FUROSEMIDE [Concomitant]

REACTIONS (4)
  - DEHYDRATION [None]
  - HYPERGLYCAEMIA [None]
  - HYPERNATRAEMIA [None]
  - RENAL FAILURE [None]
